FAERS Safety Report 23345540 (Version 1)
Quarter: 2023Q4

REPORT INFORMATION
  Report Type: Spontaneous
  Country: US (occurrence: US)
  Receive Date: 20231228
  Receipt Date: 20231228
  Transmission Date: 20240109
  Serious: No
  Sender: FDA-Public Use
  Company Number: US-002147023-NVSC2022US260790

PATIENT
  Sex: Male

DRUGS (3)
  1. AMOXICILLIN\CLAVULANATE POTASSIUM [Suspect]
     Active Substance: AMOXICILLIN\CLAVULANATE POTASSIUM
     Indication: Sinusitis
     Dosage: UNK
     Route: 065
     Dates: start: 20221102
  2. AMOXICILLIN\CLAVULANATE POTASSIUM [Suspect]
     Active Substance: AMOXICILLIN\CLAVULANATE POTASSIUM
     Indication: Prostate cancer
  3. ORGOVYX [Suspect]
     Active Substance: RELUGOLIX
     Indication: Malignant neoplasm progression
     Dosage: 120 MG, QD
     Route: 048

REACTIONS (6)
  - Epistaxis [Recovered/Resolved]
  - Hot flush [Not Recovered/Not Resolved]
  - Feeling abnormal [Unknown]
  - Weight increased [Unknown]
  - Dizziness [Unknown]
  - Sinusitis [Not Recovered/Not Resolved]
